FAERS Safety Report 22112195 (Version 4)
Quarter: 2023Q2

REPORT INFORMATION
  Report Type: Spontaneous
  Country: US (occurrence: US)
  Receive Date: 20230318
  Receipt Date: 20230623
  Transmission Date: 20230722
  Serious: No
  Sender: FDA-Public Use
  Company Number: US-002147023-NVSC2023US063086

PATIENT
  Sex: Male

DRUGS (3)
  1. MEKINIST [Suspect]
     Active Substance: TRAMETINIB DIMETHYL SULFOXIDE
     Indication: Nervous system neoplasm benign
     Dosage: 1 MG, QD (BY MOUTH)
     Route: 048
     Dates: start: 202212
  2. MEKINIST [Suspect]
     Active Substance: TRAMETINIB DIMETHYL SULFOXIDE
     Indication: Optic nerve neoplasm
     Dosage: 1 MG, QD
     Route: 048
     Dates: start: 202301
  3. MEKINIST [Suspect]
     Active Substance: TRAMETINIB DIMETHYL SULFOXIDE
     Dosage: 1.5 MG, QD (1 TIME A DAY FOR 3 WEEKS THEN TAKE WEEK OFF)
     Route: 048
     Dates: start: 202305

REACTIONS (4)
  - Rash [Unknown]
  - Ingrowing nail [Unknown]
  - Epistaxis [Unknown]
  - Product use in unapproved indication [Unknown]
